FAERS Safety Report 10062533 (Version 1)
Quarter: 2014Q2

REPORT INFORMATION
  Report Type: Spontaneous
  Country: US (occurrence: US)
  Receive Date: 20140407
  Receipt Date: 20140407
  Transmission Date: 20141212
  Serious: Yes (Hospitalization)
  Sender: FDA-Public Use
  Company Number: US-BAYER-2014-050273

PATIENT
  Age: 28 Year
  Sex: Female

DRUGS (1)
  1. SAFYRAL [Suspect]
     Indication: CONTRACEPTION
     Dosage: 1 DF, QD
     Route: 048
     Dates: start: 20140209, end: 20140305

REACTIONS (4)
  - Pulmonary thrombosis [None]
  - Asthenia [None]
  - Fatigue [None]
  - Dyspnoea [None]
